FAERS Safety Report 16482912 (Version 3)
Quarter: 2019Q3

REPORT INFORMATION
  Report Type: Spontaneous
  Country: JP (occurrence: JP)
  Receive Date: 20190627
  Receipt Date: 20190724
  Transmission Date: 20191004
  Serious: Yes (Hospitalization, Other)
  Sender: FDA-Public Use
  Company Number: JP-AMGEN-JPNSP2019100688

PATIENT
  Age: 65 Year
  Sex: Female
  Weight: 48.3 kg

DRUGS (8)
  1. KYPROLIS [Suspect]
     Active Substance: CARFILZOMIB
     Dosage: 60 MILLIGRAM/SQ. METER
     Route: 041
     Dates: start: 20171010, end: 20171011
  2. VICCLOX [ACICLOVIR] [Concomitant]
     Dosage: 200 MILLIGRAM
     Route: 048
  3. KYPROLIS [Suspect]
     Active Substance: CARFILZOMIB
     Indication: PLASMA CELL MYELOMA
     Dosage: 26 MILLIGRAM
     Route: 041
     Dates: start: 20170926, end: 20170927
  4. KYPROLIS [Suspect]
     Active Substance: CARFILZOMIB
     Dosage: 74 MILLIGRAM/SQ. METER
     Route: 041
     Dates: start: 20171003, end: 20171004
  5. KYPROLIS [Suspect]
     Active Substance: CARFILZOMIB
     Dosage: 74 MILLIGRAM/SQ. METER
     Route: 041
     Dates: start: 20171024, end: 20171114
  6. KYPROLIS [Suspect]
     Active Substance: CARFILZOMIB
     Dosage: 56 MILLIGRAM/SQ. METER
     Route: 041
     Dates: start: 20171121, end: 20181114
  7. BENET [Concomitant]
     Active Substance: RISEDRONATE SODIUM
     Indication: OSTEOPOROSIS
     Dosage: 17.5 MILLIGRAM
     Route: 048
  8. DEXART [Concomitant]
     Active Substance: DEXAMETHASONE SODIUM PHOSPHATE
     Indication: PLASMA CELL MYELOMA
     Dosage: 6.6 MG
     Route: 041
     Dates: start: 20170926, end: 20181114

REACTIONS (2)
  - Cardiac failure [Recovering/Resolving]
  - Platelet count decreased [Recovered/Resolved]

NARRATIVE: CASE EVENT DATE: 20171121
